FAERS Safety Report 7170606-8 (Version None)
Quarter: 2010Q4

REPORT INFORMATION
  Report Type: 
  Country: None (occurrence: None)
  Receive Date: 20101217
  Receipt Date: 20101214
  Transmission Date: 20110411
  Serious: Yes (Hospitalization, Other)
  Sender: FDA-Public Use
  Company Number: A0876099A

PATIENT
  Age: 79 Year
  Sex: Female
  Weight: 72.7 kg

DRUGS (12)
  1. COREG [Suspect]
     Dosage: 6.25MG TWICE PER DAY
     Route: 048
     Dates: start: 20100201
  2. WARFARIN SODIUM [Concomitant]
  3. POTASSIUM [Concomitant]
  4. NEXIUM [Concomitant]
  5. FUROSEMIDE [Concomitant]
  6. MULTI-VITAMIN [Concomitant]
  7. METOLAZONE [Concomitant]
  8. CALCIUM + VITAMIN D [Concomitant]
  9. IRON [Concomitant]
  10. HUMALOG [Concomitant]
  11. LYRICA [Concomitant]
  12. LASIX [Concomitant]

REACTIONS (12)
  - ASTHENIA [None]
  - DEHYDRATION [None]
  - DISORIENTATION [None]
  - DIZZINESS [None]
  - DRY MOUTH [None]
  - DYSARTHRIA [None]
  - FATIGUE [None]
  - FLUID IMBALANCE [None]
  - FLUID RETENTION [None]
  - ILL-DEFINED DISORDER [None]
  - WEIGHT FLUCTUATION [None]
  - WEIGHT INCREASED [None]
